FAERS Safety Report 21251590 (Version 1)
Quarter: 2022Q3

REPORT INFORMATION
  Report Type: Spontaneous
  Country: FR (occurrence: FR)
  Receive Date: 20220825
  Receipt Date: 20220825
  Transmission Date: 20221027
  Serious: Yes (Hospitalization)
  Sender: FDA-Public Use
  Company Number: None

PATIENT
  Age: 47 Year
  Sex: Female
  Weight: 65 kg

DRUGS (1)
  1. NOVORAPID [Suspect]
     Active Substance: INSULIN ASPART
     Indication: Intentional overdose
     Dosage: 320 IU
     Route: 058
     Dates: start: 20220725, end: 20220725

REACTIONS (4)
  - Hypokalaemia [Recovering/Resolving]
  - Poisoning deliberate [Recovered/Resolved]
  - Confusional state [Recovered/Resolved]
  - Sinus arrhythmia [Recovered/Resolved]

NARRATIVE: CASE EVENT DATE: 20220725
